FAERS Safety Report 6996375-X (Version None)
Quarter: 2010Q3

REPORT INFORMATION
  Report Type: 
  Country: None (occurrence: None)
  Receive Date: 20100918
  Receipt Date: 20090217
  Transmission Date: 20110219
  Serious: No
  Sender: FDA-Public Use
  Company Number: US-WYE-H08252409

PATIENT
  Sex: Male
  Weight: 122.58 kg

DRUGS (2)
  1. EFFEXOR XR [Suspect]
     Dosage: TITRATED UP TO 300 MG DAILY
     Route: 048
     Dates: start: 20060101
  2. ABILIFY [Concomitant]

REACTIONS (2)
  - WEIGHT INCREASED [None]
  - WEIGHT LOSS POOR [None]
